FAERS Safety Report 5236353-4 (Version None)
Quarter: 2007Q1

REPORT INFORMATION
  Report Type: 
  Country: None (occurrence: None)
  Receive Date: 20070208
  Receipt Date: 20070130
  Transmission Date: 20070707
  Serious: Yes (Hospitalization, Other)
  Sender: FDA-Public Use
  Company Number: 2007SP000430

PATIENT
  Age: 67 Year
  Sex: Female

DRUGS (4)
  1. DESLORATADINE [Suspect]
     Indication: HYPERSENSITIVITY
     Dosage: 1 DF; QD; PO
     Route: 048
     Dates: start: 20060715, end: 20061130
  2. AMOXICILLIN TRIHYDRATE [Suspect]
     Indication: PHARYNGOLARYNGEAL PAIN
     Dosage: 2 GM; QD; PO
     Route: 048
     Dates: start: 20041201, end: 20061207
  3. HUMEX [Concomitant]
  4. LYSOPAINE [Concomitant]

REACTIONS (2)
  - GRANULOCYTOPENIA [None]
  - PHARYNGOLARYNGEAL PAIN [None]
